FAERS Safety Report 7472518-9 (Version None)
Quarter: 2011Q2

REPORT INFORMATION
  Report Type: 
  Country: None (occurrence: None)
  Receive Date: 20110511
  Receipt Date: 20110502
  Transmission Date: 20111010
  Serious: Yes (Hospitalization)
  Sender: FDA-Public Use
  Company Number: FR-TEVA-280488ISR

PATIENT
  Sex: Male
  Weight: 87.3 kg

DRUGS (14)
  1. DEXAMETHASONE SODIUM POSPHATE [Suspect]
     Indication: MULTIPLE MYELOMA
     Dates: start: 20110223
  2. LENALIDOMIDE [Suspect]
     Indication: MULTIPLE MYELOMA
     Route: 048
     Dates: start: 20110223
  3. METOCLOPRAMIDE [Concomitant]
     Indication: NAUSEA
     Dates: start: 20101105
  4. LENALIDOMIDE [Suspect]
     Route: 048
     Dates: start: 20110314
  5. VASERETIC [Concomitant]
     Indication: HYPERTENSION
     Dates: start: 20030101
  6. CHONDROITIN SULFATE SODIUM [Concomitant]
     Indication: OSTEOARTHRITIS
     Dates: start: 20090101
  7. ACETYL SALICYLIC ACID USP BAT [Concomitant]
     Indication: THROMBOSIS PROPHYLAXIS
     Route: 048
     Dates: end: 20110223
  8. PAMIDRONATE DISODIUM [Concomitant]
     Indication: OSTEOLYSIS
     Dates: start: 20101021
  9. ACETYLSALICYLATE LYSINE [Concomitant]
     Indication: THROMBOSIS PROPHYLAXIS
     Dates: start: 20101104
  10. DEXAMETHASONE SODIUM POSPHATE [Suspect]
     Dates: start: 20110314
  11. VALACICLOVIR [Concomitant]
     Indication: HERPES ZOSTER
     Dates: start: 20100928
  12. BACTRIM [Concomitant]
     Indication: INFECTION PROPHYLAXIS
     Dates: start: 20101104
  13. GAVISCON [Concomitant]
     Indication: HICCUPS
  14. GAVISCON [Concomitant]
     Indication: NAUSEA
     Dates: start: 20101105

REACTIONS (1)
  - DEEP VEIN THROMBOSIS [None]
